FAERS Safety Report 20093953 (Version 3)
Quarter: 2022Q1

REPORT INFORMATION
  Report Type: Other
  Country: US (occurrence: US)
  Receive Date: 20211121
  Receipt Date: 20220307
  Transmission Date: 20220424
  Serious: Yes (Other)
  Sender: FDA-Public Use
  Company Number: US-Covis Pharma GmbH-2021COV24644

PATIENT
  Age: 24 Year
  Sex: Female
  Weight: 56.750 kg

DRUGS (1)
  1. MAKENA [Suspect]
     Active Substance: HYDROXYPROGESTERONE CAPROATE
     Indication: Premature delivery
     Route: 058
     Dates: start: 20211011, end: 20211103

REACTIONS (15)
  - Premature separation of placenta [Recovered/Resolved]
  - Subchorionic haematoma [Recovered/Resolved]
  - Premature delivery [Recovered/Resolved]
  - Vaginal haemorrhage [Unknown]
  - Uterine contractions during pregnancy [Recovered/Resolved]
  - Thrombosis [Not Recovered/Not Resolved]
  - Injection site hypersensitivity [Not Recovered/Not Resolved]
  - Injection site urticaria [Recovered/Resolved]
  - Urticaria [Recovered/Resolved]
  - Injection site bruising [Not Recovered/Not Resolved]
  - Shortened cervix [Recovered/Resolved]
  - Rash [Recovered/Resolved]
  - Nausea [Unknown]
  - Vomiting [Unknown]
  - Off label use [Unknown]

NARRATIVE: CASE EVENT DATE: 20210101
